FAERS Safety Report 12579031 (Version 2)
Quarter: 2016Q3

REPORT INFORMATION
  Report Type: Report from Study
  Country: MX (occurrence: MX)
  Receive Date: 20160721
  Receipt Date: 20160725
  Transmission Date: 20161109
  Serious: Yes (Death, Other)
  Sender: FDA-Public Use
  Company Number: PHHY2016MX099736

PATIENT
  Age: 88 Year
  Sex: Female
  Weight: 50 kg

DRUGS (5)
  1. RISPERDAL [Concomitant]
     Active Substance: RISPERIDONE
     Indication: PSYCHOTIC DISORDER
     Dosage: 0.5 OT, QD
     Route: 048
     Dates: start: 2016, end: 201607
  2. MEMANTINE. [Concomitant]
     Active Substance: MEMANTINE
     Indication: DEMENTIA ALZHEIMER^S TYPE
     Dosage: 1 OT, Q12H
     Route: 048
     Dates: start: 201603, end: 201607
  3. EXELON PATCH [Suspect]
     Active Substance: RIVASTIGMINE
     Indication: DEMENTIA ALZHEIMER^S TYPE
     Dosage: PATCH 5 (CM2), ONE PATCH ON MONDAYS, WEDNESDAY AND FRIDAY
     Route: 062
     Dates: start: 201603
  4. TASEDAN [Concomitant]
     Indication: SLEEP DISORDER
     Dosage: 1 OT, QD
     Route: 048
     Dates: start: 2016, end: 201607
  5. METOPROLOL. [Concomitant]
     Active Substance: METOPROLOL
     Indication: ANGINA PECTORIS
     Dosage: 0.25 OT, QD
     Route: 048
     Dates: start: 2016, end: 201607

REACTIONS (10)
  - Spinal deformity [Unknown]
  - Dyspnoea [Unknown]
  - Blood pressure fluctuation [Unknown]
  - Dementia Alzheimer^s type [Fatal]
  - Bone disorder [Unknown]
  - Abasia [Fatal]
  - Inappropriate schedule of drug administration [Unknown]
  - Cardiac failure [Fatal]
  - Embolism [Unknown]
  - Fall [Unknown]

NARRATIVE: CASE EVENT DATE: 201603
